FAERS Safety Report 23658752 (Version 3)
Quarter: 2024Q2

REPORT INFORMATION
  Report Type: Spontaneous
  Country: US (occurrence: US)
  Receive Date: 20240321
  Receipt Date: 20240506
  Transmission Date: 20240715
  Serious: No
  Sender: FDA-Public Use
  Company Number: US-PFIZER INC-PV202400037806

PATIENT
  Age: 49 Year
  Sex: Male

DRUGS (3)
  1. RUXIENCE [Suspect]
     Active Substance: RITUXIMAB-PVVR
     Indication: Rheumatoid arthritis
     Dosage: UNK
     Dates: start: 20231017
  2. RITUXAN [Concomitant]
     Active Substance: RITUXIMAB
     Dosage: UNK
  3. CELLCEPT [Concomitant]
     Active Substance: MYCOPHENOLATE MOFETIL

REACTIONS (8)
  - Cough [Unknown]
  - Muscle strain [Unknown]
  - Skin disorder [Unknown]
  - Eczema [Unknown]
  - Condition aggravated [Unknown]
  - Skin haemorrhage [Recovering/Resolving]
  - Skin fissures [Unknown]
  - Mechanic^s hand [Unknown]
